FAERS Safety Report 15271834 (Version 5)
Quarter: 2018Q4

REPORT INFORMATION
  Report Type: Spontaneous
  Country: DK (occurrence: DK)
  Receive Date: 20180813
  Receipt Date: 20181029
  Transmission Date: 20190204
  Serious: Yes (Other)
  Sender: FDA-Public Use
  Company Number: PHHY2018DK068308

PATIENT
  Age: 73 Year
  Sex: Male

DRUGS (23)
  1. DEXAMETHASONE. [Suspect]
     Active Substance: DEXAMETHASONE
     Indication: PLASMA CELL MYELOMA
     Dosage: 160 MG, QW (40 MILLIGRAM)
     Route: 048
     Dates: start: 20180326, end: 20180328
  2. DEXAMETHASONE. [Suspect]
     Active Substance: DEXAMETHASONE
     Dosage: 640 MG, QW (91.4286 MILLIGRAM)
     Route: 048
     Dates: start: 20180529, end: 20180607
  3. REVLIMID [Suspect]
     Active Substance: LENALIDOMIDE
     Indication: PLASMA CELL MYELOMA
     Dosage: UNK
     Route: 048
  4. VELCADE [Suspect]
     Active Substance: BORTEZOMIB
     Dosage: UNK
     Route: 058
     Dates: start: 20180316, end: 20180325
  5. VELCADE [Suspect]
     Active Substance: BORTEZOMIB
     Dosage: 5 MG/M2, QW (2.5 MILLIGRAM/SQ. METER)
     Route: 058
     Dates: start: 20180326, end: 20180328
  6. DEXAMETHASONE. [Suspect]
     Active Substance: DEXAMETHASONE
     Dosage: 120 MG, UNK
     Route: 048
  7. REVLIMID [Suspect]
     Active Substance: LENALIDOMIDE
     Dosage: 720 MG, QW (102.8751 MILLIGRAM)
     Route: 048
     Dates: start: 20180508, end: 20180519
  8. VELCADE [Suspect]
     Active Substance: BORTEZOMIB
     Dosage: 18.4 MG/M2, QW (9.2 MILLIGRAM/SQ. METER)
     Route: 058
     Dates: start: 20180508, end: 20180519
  9. ZARZIO [Concomitant]
     Active Substance: FILGRASTIM
     Indication: CHRONIC LYMPHOCYTIC LEUKAEMIA
     Route: 065
  10. REVLIMID [Suspect]
     Active Substance: LENALIDOMIDE
     Dosage: 600 MG, QW (85.7143 MILLIGRAM)
     Route: 048
     Dates: start: 20180412, end: 20180422
  11. DEXAMETHASONE. [Suspect]
     Active Substance: DEXAMETHASONE
     Dosage: 480 MG, QW (120 MILLIGRAM)
     Route: 048
     Dates: start: 20180330, end: 20180422
  12. VELCADE [Suspect]
     Active Substance: BORTEZOMIB
     Dosage: 20 MG, QW (10 MILLIGRAM)
     Route: 058
     Dates: start: 20180326, end: 20180407
  13. VELCADE [Suspect]
     Active Substance: BORTEZOMIB
     Dosage: 18.4 MG/M2, QW (9.2 MILLIGRAM/SQ. METER)
     Route: 058
     Dates: start: 20180529, end: 20180607
  14. REVLIMID [Suspect]
     Active Substance: LENALIDOMIDE
     Dosage: 350 MG, QW (50 MILLIGRAM)
     Route: 048
     Dates: start: 20180330, end: 20180407
  15. REVLIMID [Suspect]
     Active Substance: LENALIDOMIDE
     Dosage: 600 MG, QW (100 MILLIGRAM)
     Route: 048
     Dates: start: 20180508
  16. DEXAMETHASONE. [Suspect]
     Active Substance: DEXAMETHASONE
     Dosage: 640 MG, QW (91.4286 MILLIGRAM)
     Route: 048
     Dates: start: 20180508, end: 20180519
  17. REVLIMID [Suspect]
     Active Substance: LENALIDOMIDE
     Dosage: 80 MG, QD (80 MILLIGRAM)
     Route: 048
     Dates: start: 20180305, end: 20180314
  18. REVLIMID [Suspect]
     Active Substance: LENALIDOMIDE
     Dosage: 100 MG, QD (100 MILLIGRAM)
     Route: 048
     Dates: start: 20180326, end: 20180407
  19. VELCADE [Suspect]
     Active Substance: BORTEZOMIB
     Dosage: 15 MG/M2, QW (7.5 MILLIGRAM/SQ. METER)
     Route: 058
     Dates: start: 20180330, end: 20180407
  20. REVLIMID [Suspect]
     Active Substance: LENALIDOMIDE
     Dosage: 100 MG, QD (100 MILLIGRAM)
     Route: 048
     Dates: start: 20180529, end: 20180607
  21. VELCADE [Suspect]
     Active Substance: BORTEZOMIB
     Indication: PLASMA CELL MYELOMA
     Dosage: 15.6 MG/M2, QD (15.6 MILLIGRAM/SQ. METER)
     Route: 058
     Dates: start: 20180305, end: 20180314
  22. VELCADE [Suspect]
     Active Substance: BORTEZOMIB
     Dosage: 15.6 MG/M2, QW (7.8 MILLIGRAM/SQ. METER)
     Route: 058
     Dates: start: 20180412, end: 20180422
  23. REVLIMID [Suspect]
     Active Substance: LENALIDOMIDE
     Dosage: 30 MG, QD (30 MILLIGRAM)
     Route: 048
     Dates: start: 20180326, end: 20180328

REACTIONS (7)
  - Dyspnoea [Recovered/Resolved]
  - Dyspnoea [Recovered/Resolved]
  - Thrombocytopenia [Recovered/Resolved]
  - Fatigue [Recovered/Resolved]
  - Lung infection [Recovered/Resolved]
  - Pneumocystis jirovecii infection [Recovered/Resolved]
  - Fatigue [Recovered/Resolved]

NARRATIVE: CASE EVENT DATE: 20180316
